FAERS Safety Report 6981474-9 (Version None)
Quarter: 2010Q3

REPORT INFORMATION
  Report Type: 
  Country: None (occurrence: None)
  Receive Date: 20100914
  Receipt Date: 20100903
  Transmission Date: 20110219
  Serious: Yes (Hospitalization, Other)
  Sender: FDA-Public Use
  Company Number: US-AMGEN-QUU395595

PATIENT
  Sex: Male

DRUGS (4)
  1. NPLATE [Suspect]
     Indication: IDIOPATHIC THROMBOCYTOPENIC PURPURA
     Dates: start: 20090322, end: 20091202
  2. CORTICOSTEROIDS [Concomitant]
     Dates: start: 20090316
  3. RITUXIMAB [Concomitant]
     Dates: start: 20080316
  4. IMMU-G [Concomitant]
     Dates: start: 20090316

REACTIONS (2)
  - DEEP VEIN THROMBOSIS [None]
  - THERAPEUTIC RESPONSE DECREASED [None]
